FAERS Safety Report 7386841-X (Version None)
Quarter: 2011Q1

REPORT INFORMATION
  Report Type: 
  Country: None (occurrence: None)
  Receive Date: 20110331
  Receipt Date: 20110327
  Transmission Date: 20110831
  Serious: Yes (Other)
  Sender: FDA-Public Use
  Company Number: US-PFIZER INC-2011067920

PATIENT
  Sex: Female
  Weight: 68 kg

DRUGS (4)
  1. CHANTIX [Suspect]
     Indication: SMOKING CESSATION THERAPY
     Dosage: 0.5 MG, 1X/DAY
     Route: 048
     Dates: start: 20110307, end: 20110301
  2. ELAVIL [Concomitant]
     Dosage: UNK
  3. RISPERIDONE [Concomitant]
     Dosage: UNK
  4. CHANTIX [Suspect]
     Dosage: 1 MG, 2X/WEEK
     Dates: start: 20110301, end: 20110301

REACTIONS (3)
  - HEART RATE INCREASED [None]
  - DYSPNOEA [None]
  - HEART RATE IRREGULAR [None]
